FAERS Safety Report 12709091 (Version 1)
Quarter: 2016Q3

REPORT INFORMATION
  Report Type: Spontaneous
  Country: US (occurrence: None)
  Receive Date: 20160901
  Receipt Date: 20160901
  Transmission Date: 20161109
  Serious: Yes (Death)
  Sender: FDA-Public Use
  Company Number: None

PATIENT
  Age: 66 Year
  Sex: Female
  Weight: 106.14 kg

DRUGS (16)
  1. GLIPIZIDE. [Concomitant]
     Active Substance: GLIPIZIDE
  2. HYDROCODONE [Concomitant]
     Active Substance: HYDROCODONE
  3. ROPINIROLE. [Concomitant]
     Active Substance: ROPINIROLE
  4. CARVEDILOL. [Concomitant]
     Active Substance: CARVEDILOL
  5. ALBUTEROL. [Concomitant]
     Active Substance: ALBUTEROL
  6. BUPROPION XL [Concomitant]
     Active Substance: BUPROPION
  7. METFORMIN [Concomitant]
     Active Substance: METFORMIN HYDROCHLORIDE
  8. PAROXETINE. [Suspect]
     Active Substance: PAROXETINE
     Indication: ANXIETY
     Route: 048
  9. OPANA [Concomitant]
     Active Substance: OXYMORPHONE HYDROCHLORIDE
  10. PRAVASTATIN. [Concomitant]
     Active Substance: PRAVASTATIN
  11. ADVAIR HFA [Concomitant]
     Active Substance: FLUTICASONE PROPIONATE\SALMETEROL XINAFOATE
  12. GABAPENTIN. [Concomitant]
     Active Substance: GABAPENTIN
  13. ENALAPRIL [Concomitant]
     Active Substance: ENALAPRIL
  14. IBUPROFEN. [Concomitant]
     Active Substance: IBUPROFEN
  15. TRAZODONE [Concomitant]
     Active Substance: TRAZODONE HYDROCHLORIDE
  16. FUROSEMIDE. [Concomitant]
     Active Substance: FUROSEMIDE

REACTIONS (3)
  - Unresponsive to stimuli [None]
  - Toxicity to various agents [None]
  - Hyperthermia [None]

NARRATIVE: CASE EVENT DATE: 20150902
